FAERS Safety Report 25716195 (Version 1)
Quarter: 2025Q3

REPORT INFORMATION
  Report Type: Spontaneous
  Country: EU (occurrence: EU)
  Receive Date: 20250822
  Receipt Date: 20250822
  Transmission Date: 20251021
  Serious: Yes (Death, Life-Threatening, Hospitalization)
  Sender: FERRING
  Company Number: None

PATIENT

DRUGS (11)
  1. MINIRIN [Suspect]
     Active Substance: DESMOPRESSIN ACETATE
     Indication: Nocturia
     Dosage: 0.1 MG, DAILY
     Route: 048
     Dates: start: 20090115, end: 20090329
  2. FUROSEMIDE [Concomitant]
     Active Substance: FUROSEMIDE
     Route: 065
     Dates: start: 200901
  3. ESTRADIOL [Concomitant]
     Active Substance: ESTRADIOL
     Route: 065
  4. ACETAMINOPHEN [Concomitant]
     Active Substance: ACETAMINOPHEN
     Route: 065
  5. DETRUSITOL SR [Concomitant]
     Active Substance: TOLTERODINE TARTRATE
     Route: 065
  6. OMEPRAZOLE [Concomitant]
     Active Substance: OMEPRAZOLE
     Route: 065
  7. REMERON [Concomitant]
     Active Substance: MIRTAZAPINE
     Route: 065
  8. ZOLPIDEM TARTRATE [Concomitant]
     Active Substance: ZOLPIDEM TARTRATE
     Route: 065
  9. Triobe [Concomitant]
     Route: 065
  10. TRYPTIZOL [Concomitant]
     Active Substance: AMITRIPTYLINE HYDROCHLORIDE
     Route: 065
  11. DIAZEPAM [Concomitant]
     Active Substance: DIAZEPAM

REACTIONS (1)
  - Hyperpyrexia [Fatal]

NARRATIVE: CASE EVENT DATE: 20090201
